FAERS Safety Report 8922841 (Version 2)
Quarter: 2014Q4

REPORT INFORMATION
  Report Type: Spontaneous
  Country: US (occurrence: US)
  Receive Date: 20121123
  Receipt Date: 20141124
  Transmission Date: 20150529
  Serious: Yes (Other)
  Sender: FDA-Public Use
  Company Number: US-ROCHE-784759

PATIENT
  Sex: Female
  Weight: 74.91 kg

DRUGS (10)
  1. HYTONE [Concomitant]
     Active Substance: HYDROCORTISONE
  2. ACCUTANE [Suspect]
     Active Substance: ISOTRETINOIN
     Indication: ACNE
     Dosage: 40 MG IN MORNING AND 40 MG AT NIGHT.
     Route: 065
     Dates: start: 198410, end: 198503
  3. ACCUTANE [Suspect]
     Active Substance: ISOTRETINOIN
     Route: 065
     Dates: start: 198708, end: 198710
  4. AMNESTEEM [Suspect]
     Active Substance: ISOTRETINOIN
     Indication: ACNE
     Route: 065
  5. BENADRYL [Concomitant]
     Active Substance: DIPHENHYDRAMINE HYDROCHLORIDE
  6. DRIXORAL (UNITED STATES) [Concomitant]
  7. CLARITIN [Concomitant]
     Active Substance: LORATADINE
  8. VALTREX [Concomitant]
     Active Substance: VALACYCLOVIR HYDROCHLORIDE
  9. ACCUTANE [Suspect]
     Active Substance: ISOTRETINOIN
     Route: 065
     Dates: start: 198508, end: 198601
  10. PROZAC [Concomitant]
     Active Substance: FLUOXETINE HYDROCHLORIDE

REACTIONS (12)
  - Mental disorder [Unknown]
  - Hepatic enzyme increased [Unknown]
  - Crohn^s disease [Unknown]
  - Depression [Unknown]
  - Lip dry [Unknown]
  - Blood triglycerides increased [Unknown]
  - Irritable bowel syndrome [Unknown]
  - Inflammatory bowel disease [Unknown]
  - Arthritis [Unknown]
  - Anaemia [Unknown]
  - Colitis ulcerative [Unknown]
  - Stress [Unknown]

NARRATIVE: CASE EVENT DATE: 1985
